FAERS Safety Report 9394913 (Version 1)
Quarter: 2013Q3

REPORT INFORMATION
  Report Type: Spontaneous
  Country: GB (occurrence: GB)
  Receive Date: 20130711
  Receipt Date: 20130711
  Transmission Date: 20140515
  Serious: Yes (Other)
  Sender: FDA-Public Use
  Company Number: GB-PFIZER INC-2013201152

PATIENT
  Age: 89 Year
  Sex: Female

DRUGS (1)
  1. EPANUTIN [Suspect]
     Indication: EPILEPSY
     Dosage: 100 MG, 2X/DAY

REACTIONS (1)
  - Dysphagia [Unknown]
